FAERS Safety Report 25660649 (Version 1)
Quarter: 2025Q3

REPORT INFORMATION
  Report Type: Spontaneous
  Country: EU (occurrence: EU)
  Receive Date: 20250808
  Receipt Date: 20250808
  Transmission Date: 20251020
  Serious: Yes (Disabling)
  Sender: ABBVIE
  Company Number: None

PATIENT
  Age: 65 Year
  Sex: Female

DRUGS (1)
  1. FOSCARBIDOPA\FOSLEVODOPA [Suspect]
     Active Substance: FOSCARBIDOPA\FOSLEVODOPA
     Indication: Parkinson^s disease
     Route: 058
     Dates: start: 20250203, end: 20250719

REACTIONS (4)
  - Acute polyneuropathy [Not Recovered/Not Resolved]
  - Blood folate decreased [Unknown]
  - Vitamin B6 decreased [Unknown]
  - Hypoaesthesia [Not Recovered/Not Resolved]

NARRATIVE: CASE EVENT DATE: 20250101
